FAERS Safety Report 25720659 (Version 3)
Quarter: 2025Q4

REPORT INFORMATION
  Report Type: Report from Study
  Country: US (occurrence: US)
  Receive Date: 20250825
  Receipt Date: 20251013
  Transmission Date: 20260118
  Serious: No
  Sender: MALLINCKRODT
  Company Number: US-MALLINCKRODT-MNK202505251

PATIENT
  Sex: Female

DRUGS (2)
  1. CORTICOTROPIN [Suspect]
     Active Substance: CORTICOTROPIN
     Indication: Polymyositis
     Dosage: UNKNOWN
  2. OZEMPIC [Concomitant]
     Active Substance: SEMAGLUTIDE
     Indication: Diabetes mellitus
     Dosage: UNKNOWN

REACTIONS (8)
  - Throat irritation [Unknown]
  - Cough [Unknown]
  - Viral infection [Unknown]
  - Weight increased [Unknown]
  - Headache [Unknown]
  - Injection site pain [Unknown]
  - Injection site discolouration [Unknown]
  - Underdose [Unknown]
